FAERS Safety Report 7711953-8 (Version None)
Quarter: 2011Q3

REPORT INFORMATION
  Report Type: 
  Country: None (occurrence: None)
  Receive Date: 20110822
  Receipt Date: 20110805
  Transmission Date: 20111222
  Serious: Yes (Death)
  Sender: FDA-Public Use
  Company Number: UTC-009304

PATIENT
  Age: 59 Year
  Sex: Male
  Weight: 68.1 kg

DRUGS (4)
  1. TYVASO [Suspect]
     Indication: PULMONARY ARTERIAL HYPERTENSION
     Dosage: 72 MCG (18 MCG, 4 IN 1 D), INHALATION
     Route: 055
     Dates: start: 20100805
  2. COUMADIN [Concomitant]
  3. ADCIRCA [Concomitant]
  4. DIURETICS (DIURETICS) [Concomitant]

REACTIONS (1)
  - DEATH [None]
